FAERS Safety Report 4661126-0 (Version None)
Quarter: 2005Q2

REPORT INFORMATION
  Report Type: 
  Country: None (occurrence: None)
  Receive Date: 20050428
  Receipt Date: 20040514
  Transmission Date: 20051028
  Serious: Yes (Other)
  Sender: FDA-Public Use
  Company Number: 367943

PATIENT
  Age: 25 Year
  Sex: Male

DRUGS (2)
  1. NAPROSYN [Suspect]
     Dosage: ORAL
     Route: 048
  2. PREVACID [Suspect]
     Dosage: ORAL
     Route: 048

REACTIONS (1)
  - HAEMATEMESIS [None]
